FAERS Safety Report 7555075-8 (Version None)
Quarter: 2011Q2

REPORT INFORMATION
  Report Type: 
  Country: None (occurrence: None)
  Receive Date: 20110617
  Receipt Date: 20110601
  Transmission Date: 20111010
  Serious: No
  Sender: FDA-Public Use
  Company Number: US-B.I. PHARMACEUTICALS,INC./RIDGEFIELD-2011-BP-12448BP

PATIENT
  Age: 81 Year
  Sex: Female
  Weight: 68.3 kg

DRUGS (1)
  1. PRADAXA [Suspect]
     Indication: ATRIAL FIBRILLATION
     Dosage: 300 MG
     Dates: start: 20110205, end: 20110307

REACTIONS (7)
  - HYPERSENSITIVITY [None]
  - BURNING SENSATION [None]
  - ERYTHEMA [None]
  - URTICARIA [None]
  - DYSPEPSIA [None]
  - PRURITUS [None]
  - RASH GENERALISED [None]
